FAERS Safety Report 13431210 (Version 1)
Quarter: 2017Q2

REPORT INFORMATION
  Report Type: Spontaneous
  Country: US (occurrence: US)
  Receive Date: 20170412
  Receipt Date: 20170412
  Transmission Date: 20170830
  Serious: Yes (Hospitalization, Other)
  Sender: FDA-Public Use
  Company Number: US-PFIZER INC-2017152153

PATIENT
  Age: 86 Year
  Sex: Male
  Weight: 95.24 kg

DRUGS (4)
  1. DOFETILIDE. [Suspect]
     Active Substance: DOFETILIDE
     Dosage: 125 MG, UNK
     Dates: start: 20170106
  2. ELIQUIS [Concomitant]
     Active Substance: APIXABAN
     Indication: BLOOD DISORDER
     Dosage: 3 MG, 2X/DAY
     Route: 048
     Dates: start: 201305
  3. METOPROLOL. [Concomitant]
     Active Substance: METOPROLOL
     Dosage: 25 MG, 2X/DAY
     Route: 048
     Dates: start: 201603
  4. DOFETILIDE. [Suspect]
     Active Substance: DOFETILIDE
     Indication: ATRIAL FIBRILLATION
     Dosage: 375 MG, 2X/DAY (A 250MG AND A 125MG CAPSULE FOR A TOTAL OF 375MG)
     Route: 048
     Dates: start: 20161111

REACTIONS (5)
  - Pyrexia [Unknown]
  - Atrial fibrillation [Unknown]
  - Neuralgia [Unknown]
  - Heart rate increased [Not Recovered/Not Resolved]
  - Pain [Unknown]

NARRATIVE: CASE EVENT DATE: 201611
